FAERS Safety Report 7968846-0 (Version None)
Quarter: 2011Q4

REPORT INFORMATION
  Report Type: 
  Country: None (occurrence: None)
  Receive Date: 20111209
  Receipt Date: 20111201
  Transmission Date: 20120403
  Serious: Yes (Hospitalization)
  Sender: FDA-Public Use
  Company Number: PHHY2011CH106387

PATIENT
  Age: 4 Year
  Sex: Female

DRUGS (2)
  1. LORAZEPAM [Suspect]
     Indication: CLONUS
     Dosage: 0.5 MG/KG, UNK
     Route: 042
  2. DIAZEPAM [Suspect]
     Indication: TONIC CLONIC MOVEMENTS
     Dosage: 0.6 MG/KG, UNK
     Route: 054

REACTIONS (2)
  - RESPIRATORY ARREST [None]
  - RESPIRATORY ACIDOSIS [None]
